FAERS Safety Report 12704170 (Version 1)
Quarter: 2016Q3

REPORT INFORMATION
  Report Type: Spontaneous
  Country: US (occurrence: US)
  Receive Date: 20160831
  Receipt Date: 20160831
  Transmission Date: 20161109
  Serious: Yes (Hospitalization)
  Sender: FDA-Public Use
  Company Number: US-ASTRAZENECA-2016SE92831

PATIENT
  Sex: Male
  Weight: 14.5 kg

DRUGS (8)
  1. ERYPED [Concomitant]
     Active Substance: ERYTHROMYCIN ETHYLSUCCINATE
     Indication: IMPAIRED GASTRIC EMPTYING
  2. KLONOPIN [Concomitant]
     Active Substance: CLONAZEPAM
  3. KEPPRA [Concomitant]
     Active Substance: LEVETIRACETAM
  4. RANITIDINE. [Concomitant]
     Active Substance: RANITIDINE
  5. TRILEPTAL [Concomitant]
     Active Substance: OXCARBAZEPINE
  6. DIASTAT [Concomitant]
     Active Substance: DIAZEPAM
  7. SYNAGIS [Suspect]
     Active Substance: PALIVIZUMAB
     Route: 030
     Dates: start: 201210
  8. VALPROIC ACID. [Concomitant]
     Active Substance: VALPROIC ACID

REACTIONS (2)
  - Sputum retention [Not Recovered/Not Resolved]
  - Respiratory syncytial virus infection [Unknown]
